FAERS Safety Report 16728494 (Version 2)
Quarter: 2019Q4

REPORT INFORMATION
  Report Type: Spontaneous
  Country: SE (occurrence: SE)
  Receive Date: 20190822
  Receipt Date: 20191025
  Transmission Date: 20200122
  Serious: Yes (Disabling)
  Sender: FDA-Public Use
  Company Number: SE-BRISTOL-MYERS SQUIBB COMPANY-BMS-2019-080065

PATIENT
  Age: 65 Year
  Sex: Female

DRUGS (1)
  1. NIVOLUMAB [Suspect]
     Active Substance: NIVOLUMAB
     Indication: RENAL CELL CARCINOMA
     Dosage: UNAVAILABLE
     Route: 065
     Dates: end: 201906

REACTIONS (1)
  - Mobility decreased [Unknown]

NARRATIVE: CASE EVENT DATE: 201902
